FAERS Safety Report 15010083 (Version 3)
Quarter: 2018Q3

REPORT INFORMATION
  Report Type: Spontaneous
  Country: US (occurrence: US)
  Receive Date: 20180614
  Receipt Date: 20180803
  Transmission Date: 20181010
  Serious: No
  Sender: FDA-Public Use
  Company Number: US-PFIZER INC-2018241557

PATIENT
  Age: 61 Year
  Sex: Female

DRUGS (1)
  1. XELJANZ XR [Suspect]
     Active Substance: TOFACITINIB CITRATE
     Dosage: 11 MG, UNK
     Dates: start: 201805

REACTIONS (5)
  - Pain [Unknown]
  - Nervous system disorder [Unknown]
  - Pre-existing condition improved [Unknown]
  - Carpal tunnel syndrome [Unknown]
  - Therapeutic response unexpected [Unknown]
